FAERS Safety Report 8471453-7 (Version None)
Quarter: 2012Q2

REPORT INFORMATION
  Report Type: 
  Country: None (occurrence: None)
  Receive Date: 20120627
  Receipt Date: 20120622
  Transmission Date: 20120825
  Serious: Yes (Other)
  Sender: FDA-Public Use
  Company Number: PHHY2010MX12012

PATIENT
  Age: 78 Year
  Sex: Female

DRUGS (7)
  1. JANUVIA [Concomitant]
     Indication: DIABETES MELLITUS
     Dosage: 1 DF, 2.5 TABLETS DAILY
  2. MABTHERA [Concomitant]
     Indication: RHEUMATOID ARTHRITIS
     Dosage: 1 DF, EACH 6 MONTHS
  3. ZOLEDRONOC ACID [Suspect]
     Dosage: 5 MG/100 ML/ YEAR
     Route: 042
     Dates: start: 20080201
  4. ZOLEDRONOC ACID [Suspect]
     Dosage: 5 MG/100 ML/ YEAR
     Route: 042
     Dates: start: 20090201
  5. ZOLEDRONOC ACID [Suspect]
     Indication: OSTEOPOROSIS
     Dosage: 5 MG/100 ML/ YEAR
     Route: 042
     Dates: start: 20070920
  6. GLYBURIDE [Concomitant]
     Indication: DIABETES MELLITUS
     Dosage: UNK UKN, UNK
  7. METOPROLOL TARTRATE [Concomitant]
     Indication: HYPERTENSION
     Dosage: 1 DF, ONCE/SINGLE

REACTIONS (5)
  - PARATHYROID TUMOUR MALIGNANT [None]
  - SALIVARY GLAND MASS [None]
  - FALL [None]
  - CEREBRAL THROMBOSIS [None]
  - HIP FRACTURE [None]
